FAERS Safety Report 4524597-6 (Version None)
Quarter: 2004Q4

REPORT INFORMATION
  Report Type: 
  Country: None (occurrence: None)
  Receive Date: 20041117
  Receipt Date: 20040713
  Transmission Date: 20050328
  Serious: Yes (Hospitalization)
  Sender: FDA-Public Use
  Company Number: US-JNJFOC-20040704503

PATIENT
  Sex: Female

DRUGS (11)
  1. LEVAQUIN [Suspect]
     Indication: URINARY TRACT INFECTION
  2. PEG-INTRON [Suspect]
     Indication: HEPATITIS C
     Dosage: 120 MG, INJECTION
     Dates: start: 20030319, end: 20040324
  3. MAGNESIUM OXIDE (MAGNESIUM OXIDE) [Concomitant]
  4. CALCIUM (CALCIUM) TABLETS [Concomitant]
  5. ALTACE (RAMIPRIL) [Concomitant]
  6. AVAPRO [Concomitant]
  7. ACTONEL [Concomitant]
  8. PROGRAF [Concomitant]
  9. PREVACID [Concomitant]
  10. METOPROLOL TARTRATE [Concomitant]
  11. DRISDOL [Concomitant]

REACTIONS (8)
  - ASTHENIA [None]
  - DEPRESSION [None]
  - DIARRHOEA [None]
  - HYPOVOLAEMIA [None]
  - MENTAL STATUS CHANGES [None]
  - NAUSEA [None]
  - VOMITING [None]
  - WEIGHT DECREASED [None]
